FAERS Safety Report 16479836 (Version 1)
Quarter: 2019Q2

REPORT INFORMATION
  Report Type: Spontaneous
  Country: FI (occurrence: FI)
  Receive Date: 20190626
  Receipt Date: 20190626
  Transmission Date: 20190711
  Serious: Yes (Other)
  Sender: FDA-Public Use
  Company Number: FI-TEVA-2019-FI-1069267

PATIENT
  Age: 65 Year
  Sex: Male

DRUGS (3)
  1. AMLODIPINE [Suspect]
     Active Substance: AMLODIPINE BESYLATE
     Indication: HYPERTENSION
     Dosage: 5 MG DAILY
     Route: 048
  2. APYDAN [OXCARBAZEPINE] [Suspect]
     Active Substance: OXCARBAZEPINE
     Indication: EPILEPSY
     Dosage: 600 MG DAILY
     Route: 048
     Dates: start: 20190522, end: 20190524
  3. KEPPRA [Suspect]
     Active Substance: LEVETIRACETAM
     Indication: EPILEPSY
     Dosage: 2000 MG DAILY
     Route: 048

REACTIONS (5)
  - Tongue oedema [Recovered/Resolved]
  - Oedema mouth [Recovered/Resolved]
  - Oropharyngeal discomfort [Recovered/Resolved]
  - Blister [Recovered/Resolved]
  - Lip blister [Recovered/Resolved]

NARRATIVE: CASE EVENT DATE: 20190522
